FAERS Safety Report 8793596 (Version 4)
Quarter: 2012Q4

REPORT INFORMATION
  Report Type: 
  Country: US (occurrence: US)
  Receive Date: 20120917
  Receipt Date: 20121023
  Transmission Date: 20130627
  Serious: Yes (Congenital Anomaly, Other)
  Sender: FDA-Public Use
  Company Number: US-VIIV HEALTHCARE LIMITED-A0993334A

PATIENT
  Age: 0 Year
  Sex: Female
  Weight: 2.7 kg

DRUGS (3)
  1. COMBIVIR [Suspect]
     Indication: ANTIVIRAL TREATMENT
     Dosage: 2TAB per day
     Route: 064
     Dates: start: 20120109
  2. VIRACEPT [Suspect]
     Indication: ANTIVIRAL TREATMENT
     Dosage: 2500MG per day
     Route: 064
     Dates: start: 20120109
  3. KALETRA [Suspect]
     Indication: ANTIVIRAL TREATMENT
     Dosage: 4TABS per day
     Route: 064
     Dates: start: 20120109

REACTIONS (3)
  - Congenital nose malformation [Unknown]
  - Respiration abnormal [Unknown]
  - Foetal exposure during pregnancy [Unknown]
